FAERS Safety Report 5530601-9 (Version None)
Quarter: 2007Q4

REPORT INFORMATION
  Report Type: 
  Country: None (occurrence: None)
  Receive Date: 20071128
  Receipt Date: 20071128
  Transmission Date: 20080405
  Serious: Yes (Hospitalization)
  Sender: FDA-Public Use
  Company Number: None

PATIENT
  Age: 47 Year
  Sex: Female
  Weight: 91.6266 kg

DRUGS (1)
  1. DILAUDID [Suspect]
     Indication: PROCEDURAL PAIN
     Dosage: 4 MG TOTAL IV
     Route: 042
     Dates: start: 20070619

REACTIONS (2)
  - OXYGEN SATURATION DECREASED [None]
  - SEDATION [None]
